FAERS Safety Report 9920293 (Version 1)
Quarter: 2014Q1

REPORT INFORMATION
  Report Type: Spontaneous
  Country: FR (occurrence: FR)
  Receive Date: 20140224
  Receipt Date: 20140224
  Transmission Date: 20141002
  Serious: Yes (Life-Threatening)
  Sender: FDA-Public Use
  Company Number: PHHY2014FR021273

PATIENT
  Age: 91 Year
  Sex: Female

DRUGS (8)
  1. VOLTARENE LP [Suspect]
     Indication: BACK PAIN
     Dosage: 75 MG, QD
     Route: 048
     Dates: start: 20131015, end: 20131108
  2. COVERSYL [Concomitant]
     Dosage: 10 MG, UNK
     Route: 048
  3. LEVOTHYROX [Concomitant]
     Dosage: 25 UG, UNK
     Route: 048
  4. LASILIX [Concomitant]
     Dosage: 40 MG, UNK
     Route: 048
  5. SPIRONOLACTONE [Concomitant]
     Dosage: UNK UKN, UNK
  6. PANTOPRAZOLE [Concomitant]
     Dosage: 20 MG, UNK
     Route: 048
     Dates: start: 20131015
  7. ALPRAZOLAM [Concomitant]
     Dosage: UNK UKN, UNK
  8. DUROGESIC [Concomitant]
     Dosage: 50 UG/HR, UNK
     Route: 062

REACTIONS (11)
  - Hypovolaemic shock [Recovered/Resolved]
  - Shock haemorrhagic [Unknown]
  - Hypotension [Unknown]
  - Haemorrhagic anaemia [Recovering/Resolving]
  - Gastric ulcer [Recovering/Resolving]
  - Haematemesis [Unknown]
  - Melaena [Unknown]
  - Perforated ulcer [Unknown]
  - Gastrointestinal haemorrhage [Recovered/Resolved]
  - Renal failure acute [Recovered/Resolved]
  - Malaise [Unknown]
